FAERS Safety Report 17937167 (Version 1)
Quarter: 2020Q2

REPORT INFORMATION
  Report Type: Spontaneous
  Country: DE (occurrence: DE)
  Receive Date: 20200624
  Receipt Date: 20200624
  Transmission Date: 20200714
  Serious: Yes (Hospitalization)
  Sender: FDA-Public Use
  Company Number: DE-TEVA-2020-DE-1790605

PATIENT
  Age: 85 Year
  Sex: Female

DRUGS (12)
  1. TAVEGIL [Concomitant]
     Active Substance: CLEMASTINE FUMARATE
     Dosage: 1 DOSAGE FORMS DAILY; NK MG, 0-0-1-0
     Route: 048
  2. COLECALCIFEROL (VITAMIN D) [Concomitant]
     Dosage: 1000 IU (INTERNATIONAL UNIT) DAILY; 1-0-0-0
     Route: 048
  3. RAMIPRIL. [Concomitant]
     Active Substance: RAMIPRIL
     Dosage: 2.5 MILLIGRAM DAILY; 1-0-0-0
     Route: 048
  4. AMIODARON [Suspect]
     Active Substance: AMIODARONE
     Dosage: 200 MILLIGRAM DAILY; 1-0-0-0
     Route: 048
  5. TILIDINE/NALOXONE [Concomitant]
     Active Substance: NALOXONE HYDROCHLORIDE\TILIDINE HYDROCHLORIDE
     Dosage: 2 DOSAGE FORMS DAILY; 8|100 MG, 1-0-1-0
     Route: 048
  6. LACTEOL PULVER ZUR HERSTELLUNG EINER SUSPENSION Z. EINNEHMEN [Concomitant]
     Dosage: NK MG, 1X, POWDER FOR THE PREPARATION OF A SUSPENSION
     Route: 048
  7. ROTER GINGSENG 300MG [Concomitant]
     Dosage: 300 MG, PATIENT TAKES HIMSELF
     Route: 048
  8. TORASEMID [Concomitant]
     Active Substance: TORSEMIDE
     Dosage: 10 MILLIGRAM DAILY; 1-0-0-0
     Route: 048
  9. METOPROLOL. [Suspect]
     Active Substance: METOPROLOL
     Dosage: 190 MILLIGRAM DAILY;  1-0-1-0
     Route: 048
  10. AMLODIPIN [Concomitant]
     Active Substance: AMLODIPINE BESYLATE
     Dosage: 10 MILLIGRAM DAILY; 5 MG, 1-0-1-0
     Route: 048
  11. METAMIZOL [Concomitant]
     Active Substance: METAMIZOLE SODIUM
     Dosage: 500 MG, IF NECESSARY 30 TROPICS PER DAY
     Route: 048
  12. DABIGATRAN [Concomitant]
     Active Substance: DABIGATRAN
     Dosage: 220 MILLIGRAM DAILY;  1-0-1-0
     Route: 048

REACTIONS (4)
  - General physical health deterioration [Unknown]
  - Bradycardia [Unknown]
  - Syncope [Unknown]
  - Arrhythmia [Unknown]
